FAERS Safety Report 7924322 (Version 5)
Quarter: 2013Q2

REPORT INFORMATION
  Report Type: Spontaneous
  Country: US (occurrence: None)
  Receive Date: 20110406
  Receipt Date: 20130603
  Transmission Date: 20140414
  Serious: Yes (Other)
  Sender: FDA-Public Use
  Company Number: 2011-0173

PATIENT
  Age: 8 Year
  Sex: Male
  Weight: 16.4 kg

DRUGS (1)
  1. INCRELEX [Suspect]
     Indication: PRIMARY INSULIN LIKE GROWTH FACTOR-1 DEFICIENCY
     Dosage: 4 MG (2 MG, 2 IN 1 D) SUBCUTANEOUS
     Route: 058
     Dates: start: 20100112, end: 20110118

REACTIONS (3)
  - HYPOGLYCAEMIA [None]
  - ABDOMINAL PAIN [None]
  - Headache [None]
